FAERS Safety Report 25933791 (Version 1)
Quarter: 2025Q4

REPORT INFORMATION
  Report Type: Spontaneous
  Country: CN (occurrence: CN)
  Receive Date: 20251017
  Receipt Date: 20251017
  Transmission Date: 20260118
  Serious: Yes (Hospitalization, Other)
  Sender: BAXTER
  Company Number: None

PATIENT
  Age: 3 Year
  Sex: Male
  Weight: 14 kg

DRUGS (7)
  1. CYCLOPHOSPHAMIDE [Suspect]
     Active Substance: CYCLOPHOSPHAMIDE
     Indication: Burkitt^s lymphoma
     Dosage: 0.2 G, QD, {D1, D2, D3, D4}
     Route: 041
     Dates: start: 20250907, end: 20250910
  2. MESNA [Suspect]
     Active Substance: MESNA
     Indication: Burkitt^s lymphoma
     Dosage: UNK, {D1, D2, D3, D4}
     Route: 065
     Dates: start: 20250907
  3. DOXORUBICIN HYDROCHLORIDE [Suspect]
     Active Substance: DOXORUBICIN HYDROCHLORIDE
     Indication: Burkitt^s lymphoma
     Dosage: 11.8 MG, QD
     Route: 041
     Dates: start: 20250908, end: 20250909
  4. VINDESINE SULFATE [Suspect]
     Active Substance: VINDESINE SULFATE
     Indication: Burkitt^s lymphoma
     Dosage: 1.8 MG, QD, {D1}
     Route: 042
     Dates: start: 20250907, end: 20250907
  5. CYTARABINE [Suspect]
     Active Substance: CYTARABINE
     Indication: Burkitt^s lymphoma
     Dosage: 1200 MG, BID, D5
     Route: 041
     Dates: start: 20250911, end: 20250911
  6. ADRIAMYCIN [Concomitant]
     Active Substance: DOXORUBICIN HYDROCHLORIDE
     Dosage: UNK, {D2, D3}
     Route: 065
     Dates: start: 20250907
  7. PREDNISONE [Concomitant]
     Active Substance: PREDNISONE
     Dosage: UNK, D1
     Route: 065

REACTIONS (3)
  - Myelosuppression [Unknown]
  - Infection [Unknown]
  - Pyrexia [Recovering/Resolving]

NARRATIVE: CASE EVENT DATE: 20250918
